FAERS Safety Report 6677247-7 (Version None)
Quarter: 2010Q2

REPORT INFORMATION
  Report Type: 
  Country: None (occurrence: None)
  Receive Date: 20100408
  Receipt Date: 20100408
  Transmission Date: 20101027
  Serious: No
  Sender: FDA-Public Use
  Company Number: None

PATIENT
  Age: 41 Year
  Sex: Male
  Weight: 113.3993 kg

DRUGS (2)
  1. MEPERIDINE HCL [Suspect]
     Indication: CHILLS
     Dosage: 12.5 MG Q 5 MIN PRN IV
     Route: 042
     Dates: start: 20100318
  2. MEPERIDINE HCL [Suspect]
     Indication: POST PROCEDURAL COMPLICATION
     Dosage: 12.5 MG Q 5 MIN PRN IV
     Route: 042
     Dates: start: 20100318

REACTIONS (3)
  - DYSPNOEA [None]
  - INFUSION RELATED REACTION [None]
  - RASH MACULO-PAPULAR [None]
